FAERS Safety Report 17829485 (Version 1)
Quarter: 2020Q2

REPORT INFORMATION
  Report Type: Spontaneous
  Country: US (occurrence: US)
  Receive Date: 20200527
  Receipt Date: 20200527
  Transmission Date: 20200714
  Serious: No
  Sender: FDA-Public Use
  Company Number: None

PATIENT
  Age: 83 Year
  Sex: Female

DRUGS (6)
  1. METOPROLOL ER [Concomitant]
     Active Substance: METOPROLOL SUCCINATE
  2. LANSOPRAZOLE. [Concomitant]
     Active Substance: LANSOPRAZOLE
  3. CO-Q 10 [Concomitant]
     Active Substance: UBIDECARENONE
  4. DYAZIDE [Concomitant]
     Active Substance: HYDROCHLOROTHIAZIDE\TRIAMTERENE
  5. REPATHA [Suspect]
     Active Substance: EVOLOCUMAB
     Dosage: ?          OTHER FREQUENCY:EVERY 2 WEEKS;?
     Route: 058
  6. AMLODEPINE [Concomitant]

REACTIONS (2)
  - Muscular weakness [None]
  - Dyspnoea [None]
